FAERS Safety Report 10636570 (Version 1)
Quarter: 2014Q4

REPORT INFORMATION
  Report Type: Spontaneous
  Country: None (occurrence: None)
  Receive Date: 20141204
  Receipt Date: 20141204
  Transmission Date: 20150529
  Serious: Yes (Other)
  Sender: FDA-Public Use
  Company Number: 2014120007

PATIENT
  Age: 68 Year
  Sex: Female

DRUGS (7)
  1. TARKA (VERAPAMIL HYDROCHLORIDE, TRANDOLAPRIL) [Concomitant]
  2. CIPRAMIL (CITALOPRAM HYDROBROMIDE) [Concomitant]
  3. ENABLEX (DARIFENACIN) [Concomitant]
  4. ECOTRIN [Concomitant]
     Active Substance: ASPIRIN
  5. UNAT [Suspect]
     Active Substance: TORSEMIDE
     Indication: DIURETIC THERAPY
     Dosage: (5 MG), ORAL
     Route: 048
     Dates: start: 20140908, end: 20140915
  6. SPIRACTIN (SPIRONOLACTONE) [Concomitant]
  7. ELTROXIN (LEVOTHYROXINE SODIUM) [Concomitant]

REACTIONS (5)
  - Swelling [None]
  - Blindness [None]
  - Eye swelling [None]
  - Hypersensitivity [None]
  - Visual impairment [None]

NARRATIVE: CASE EVENT DATE: 20140914
